FAERS Safety Report 5123673-7 (Version None)
Quarter: 2006Q3

REPORT INFORMATION
  Report Type: 
  Country: None (occurrence: None)
  Receive Date: 20060811
  Receipt Date: 20060509
  Transmission Date: 20061208
  Serious: No
  Sender: FDA-Public Use
  Company Number: S06-USA-01744-01

PATIENT
  Age: 96 Year
  Sex: Female

DRUGS (7)
  1. NAMENDA [Suspect]
     Indication: DEMENTIA ALZHEIMER'S TYPE
     Dosage: 5 MG BID PO
     Route: 048
     Dates: start: 20060507
  2. NAMENDA [Suspect]
     Indication: DEMENTIA ALZHEIMER'S TYPE
     Dosage: 5 MG QD PO
     Route: 048
     Dates: start: 20060430, end: 20060506
  3. ARICEPT [Concomitant]
  4. ASPIRIN [Concomitant]
  5. UNKNOWN MEDICATION [Concomitant]
  6. FOSAMAX [Concomitant]
  7. PREDNISONE TAB [Concomitant]

REACTIONS (3)
  - MYALGIA [None]
  - PAIN [None]
  - SYNCOPE [None]
